FAERS Safety Report 9175362 (Version 1)
Quarter: 2013Q1

REPORT INFORMATION
  Report Type: Spontaneous
  Country: GB (occurrence: GB)
  Receive Date: 20130320
  Receipt Date: 20130320
  Transmission Date: 20140127
  Serious: Yes (Hospitalization)
  Sender: FDA-Public Use
  Company Number: GB-JNJFOC-20130306512

PATIENT
  Sex: Male

DRUGS (1)
  1. XEPLION [Suspect]
     Indication: SCHIZOPHRENIA
     Route: 030

REACTIONS (2)
  - Malaise [Unknown]
  - Drug ineffective [Unknown]
